FAERS Safety Report 18530403 (Version 2)
Quarter: 2020Q4

REPORT INFORMATION
  Report Type: Report from Study
  Country: None (occurrence: US)
  Receive Date: 20201120
  Receipt Date: 20201215
  Transmission Date: 20210114
  Serious: Yes (Hospitalization, Other)
  Sender: FDA-Public Use
  Company Number: US-ABBVIE-20K-163-3425995-00

PATIENT
  Age: 56 Year
  Sex: Female
  Weight: 74.91 kg

DRUGS (9)
  1. FOLIC ACID. [Concomitant]
     Active Substance: FOLIC ACID
     Indication: PRODUCT USED FOR UNKNOWN INDICATION
  2. PRILOSEC [Concomitant]
     Active Substance: OMEPRAZOLE MAGNESIUM
     Indication: GASTROOESOPHAGEAL REFLUX DISEASE
  3. PREDNISONE. [Concomitant]
     Active Substance: PREDNISONE
     Indication: CROHN^S DISEASE
  4. HUMIRA [Suspect]
     Active Substance: ADALIMUMAB
     Indication: CROHN^S DISEASE
     Route: 058
     Dates: start: 20200316, end: 202009
  5. VITAMIN B [Concomitant]
     Active Substance: VITAMIN B
     Indication: SUPPLEMENTATION THERAPY
     Route: 058
  6. HUMIRA [Suspect]
     Active Substance: ADALIMUMAB
     Indication: COLITIS ULCERATIVE
     Route: 058
     Dates: start: 202009
  7. VENLAFAXINE [Concomitant]
     Active Substance: VENLAFAXINE HYDROCHLORIDE
     Indication: HOT FLUSH
  8. KLONOPIN [Concomitant]
     Active Substance: CLONAZEPAM
     Indication: ANXIETY
  9. NICOTINE. [Concomitant]
     Active Substance: NICOTINE
     Indication: PRODUCT USED FOR UNKNOWN INDICATION
     Dosage: PATCH AND GUM

REACTIONS (11)
  - Nausea [Not Recovered/Not Resolved]
  - Arthralgia [Recovering/Resolving]
  - Colitis [Recovered/Resolved]
  - Abdominal pain upper [Recovered/Resolved]
  - Neck pain [Recovering/Resolving]
  - Crohn^s disease [Unknown]
  - Abdominal pain upper [Unknown]
  - Pain in extremity [Recovering/Resolving]
  - Chest pain [Recovering/Resolving]
  - Adverse food reaction [Unknown]
  - Drug ineffective [Recovered/Resolved]

NARRATIVE: CASE EVENT DATE: 202003
